FAERS Safety Report 6140101-3 (Version None)
Quarter: 2009Q1

REPORT INFORMATION
  Report Type: 
  Country: None (occurrence: None)
  Receive Date: 20090324
  Receipt Date: 20090319
  Transmission Date: 20090719
  Serious: Yes (Other)
  Sender: FDA-Public Use
  Company Number: 2009002038

PATIENT
  Age: 40 Year
  Sex: Male

DRUGS (1)
  1. TRISENOX [Suspect]
     Indication: ACUTE PROMYELOCYTIC LEUKAEMIA
     Dosage: (0.15 MG/KG), INTRAVENOUS; 2 COURSES (ACCUMULATED DOSE, 950 MG TOTAL DOSE), INTRAVENOUS
     Route: 042
     Dates: start: 20040901

REACTIONS (4)
  - BLOOD PRODUCT TRANSFUSION DEPENDENT [None]
  - BONE MARROW FAILURE [None]
  - PANCYTOPENIA [None]
  - STEM CELL TRANSPLANT [None]
